FAERS Safety Report 6632725-1 (Version None)
Quarter: 2010Q1

REPORT INFORMATION
  Report Type: 
  Country: None (occurrence: None)
  Receive Date: 20100312
  Receipt Date: 20100301
  Transmission Date: 20100710
  Serious: Yes (Other)
  Sender: FDA-Public Use
  Company Number: FR-ELI_LILLY_AND_COMPANY-FR201001004336

PATIENT
  Age: 80 Year
  Sex: Female
  Weight: 53 kg

DRUGS (3)
  1. FORTEO [Suspect]
     Indication: OSTEOPOROSIS
     Dosage: 20 UG, DAILY (1/D)
     Route: 058
     Dates: start: 20080913
  2. DURAGESIC-100 [Concomitant]
     Dosage: UNK, UNKNOWN
     Route: 062
  3. CORDARONE [Concomitant]
     Indication: TACHYARRHYTHMIA
     Dosage: UNK, UNKNOWN

REACTIONS (2)
  - TACHYARRHYTHMIA [None]
  - THYROID DISORDER [None]
